FAERS Safety Report 8475391-5 (Version None)
Quarter: 2012Q2

REPORT INFORMATION
  Report Type: 
  Country: None (occurrence: None)
  Receive Date: 20120628
  Receipt Date: 20120613
  Transmission Date: 20120825
  Serious: Yes (Other)
  Sender: FDA-Public Use
  Company Number: US-ROCHE-1078568

PATIENT
  Age: 60 Year
  Sex: Female
  Weight: 64.468 kg

DRUGS (3)
  1. TAXOTERE [Concomitant]
     Indication: BREAST CANCER METASTATIC
     Dosage: 3RD DOSE
  2. HERCEPTIN [Suspect]
     Indication: BREAST CANCER METASTATIC
     Dates: start: 20030101
  3. TYKERB [Concomitant]
     Indication: BREAST CANCER METASTATIC

REACTIONS (4)
  - NEOPLASM [None]
  - WEIGHT INCREASED [None]
  - HAIR DISORDER [None]
  - DISEASE PROGRESSION [None]
